FAERS Safety Report 17486364 (Version 1)
Quarter: 2020Q1

REPORT INFORMATION
  Report Type: Spontaneous
  Country: GB (occurrence: GB)
  Receive Date: 20200303
  Receipt Date: 20200303
  Transmission Date: 20200409
  Serious: Yes (Disabling)
  Sender: FDA-Public Use
  Company Number: GB-009507513-2002GBR010185

PATIENT
  Age: 40 Year
  Sex: Female
  Weight: 94 kg

DRUGS (10)
  1. FOLIC ACID. [Concomitant]
     Active Substance: FOLIC ACID
     Dosage: 1 DOSAGE FORM, QD
     Dates: start: 20191113, end: 20191212
  2. ATENOLOL. [Concomitant]
     Active Substance: ATENOLOL
     Dosage: 1 DOSAGE FORM, IN MORNING
     Dates: start: 20200130
  3. RAMIPRIL. [Concomitant]
     Active Substance: RAMIPRIL
     Dosage: 1 DOSAGE FORM, QD (INSTEAD OF LABETALOL)
     Dates: start: 20191212, end: 20200212
  4. AMLODIPINE [Concomitant]
     Active Substance: AMLODIPINE BESYLATE
     Dosage: 1 DOSAGE FORM, QD
     Dates: start: 20200210
  5. DIAZEPAM. [Concomitant]
     Active Substance: DIAZEPAM
     Dosage: HALF OR ONE TABLE AS REQUIRED . NOT FOR LONG TERM
     Dates: start: 20200112
  6. MOMETASONE FUROATE. [Concomitant]
     Active Substance: MOMETASONE FUROATE
     Dosage: 2 DOSAGE FORM, QD, SPRAYS
     Dates: start: 20181026
  7. LEVOTHYROXINE SODIUM. [Concomitant]
     Active Substance: LEVOTHYROXINE SODIUM
     Dosage: 125 MICROGRAM, QD
     Dates: start: 20170807
  8. LOSARTAN POTASSIUM. [Suspect]
     Active Substance: LOSARTAN POTASSIUM
     Dosage: 25 MILLIGRAM, QD
     Dates: start: 20200207
  9. ASPIRIN. [Concomitant]
     Active Substance: ASPIRIN
     Dosage: 1 DOSAGE FORM, QD, UNTIL BRTH OF BABY
     Dates: start: 20191113, end: 20191212
  10. LABETALOL HYDROCHLORIDE. [Concomitant]
     Active Substance: LABETALOL HYDROCHLORIDE
     Dosage: 2 DOSAGE FORM, QD
     Dates: start: 20190919, end: 20191212

REACTIONS (2)
  - Musculoskeletal pain [Recovered/Resolved]
  - Neck pain [Recovered/Resolved]

NARRATIVE: CASE EVENT DATE: 20200212
